FAERS Safety Report 6713948-X (Version None)
Quarter: 2010Q2

REPORT INFORMATION
  Report Type: 
  Country: None (occurrence: None)
  Receive Date: 20100506
  Receipt Date: 20100503
  Transmission Date: 20101027
  Serious: Yes (Hospitalization)
  Sender: FDA-Public Use
  Company Number: US-BRISTOL-MYERS SQUIBB COMPANY-15046204

PATIENT
  Age: 74 Year
  Sex: Male

DRUGS (7)
  1. ERBITUX [Suspect]
     Indication: COLORECTAL CANCER
     Dosage: INTERRUPTED AND RESTARTED ON 3APR2010 DURATION:9MONTHS
     Route: 042
     Dates: start: 20090608
  2. LOPRESSOR [Concomitant]
  3. ZOCOR [Concomitant]
  4. ASPIRIN [Concomitant]
  5. OXYCODONE HCL [Concomitant]
     Indication: ARTHRALGIA
  6. HYDROCHLOROTHIAZIDE [Concomitant]
  7. DIPHENHYDRAMINE HCL [Concomitant]
     Dosage: 12-APR-2010,19 AND 27.
     Dates: start: 20100404

REACTIONS (3)
  - CONFUSIONAL STATE [None]
  - MENTAL STATUS CHANGES [None]
  - MUSCULOSKELETAL STIFFNESS [None]
